FAERS Safety Report 6730999-X (Version None)
Quarter: 2010Q2

REPORT INFORMATION
  Report Type: 
  Country: None (occurrence: None)
  Receive Date: 20100518
  Receipt Date: 20100316
  Transmission Date: 20101027
  Serious: Yes (Hospitalization, Other)
  Sender: FDA-Public Use
  Company Number: GB-BAYER-200311523GDS

PATIENT
  Age: 31 Year
  Sex: Female

DRUGS (12)
  1. ADALAT [Suspect]
     Indication: PREGNANCY INDUCED HYPERTENSION
     Route: 048
  2. TRANDATE [Suspect]
     Indication: PREGNANCY INDUCED HYPERTENSION
     Dosage: TOTAL DAILY DOSE: 600 MG  UNIT DOSE: 200 MG
     Route: 048
  3. ATROPIN [Concomitant]
     Indication: HYPOTENSION
     Dosage: TOTAL DAILY DOSE: 2.4 MG
     Route: 065
  4. EPHEDRINE [Concomitant]
     Indication: HYPOTENSION
     Route: 042
  5. METARAMINOL BITARTRATE [Concomitant]
     Indication: HYPOTENSION
     Route: 065
  6. PENTASTARCH [Concomitant]
     Indication: HYPOTENSION
     Route: 041
  7. CALCIUM GLUCONATE [Concomitant]
     Indication: HYPOTENSION
     Route: 042
  8. OXYTOCIN [Concomitant]
     Indication: HYPOTENSION
     Route: 042
  9. KETAMINE HCL [Concomitant]
     Indication: INDUCTION OF ANAESTHESIA
     Route: 065
  10. SUXAMETHONIUM [Concomitant]
     Indication: DRUG USE FOR UNKNOWN INDICATION
     Route: 065
  11. NITROUS OXIDE [Concomitant]
     Indication: MAINTENANCE OF ANAESTHESIA
     Route: 065
  12. ISOFLURANE [Concomitant]
     Indication: MAINTENANCE OF ANAESTHESIA
     Route: 065

REACTIONS (8)
  - ANXIETY [None]
  - CENTRAL VENOUS PRESSURE INCREASED [None]
  - HEART RATE ABNORMAL [None]
  - HYPOTENSION [None]
  - PALLOR [None]
  - PREMATURE LABOUR [None]
  - PREMATURE SEPARATION OF PLACENTA [None]
  - PULMONARY CONGESTION [None]
